FAERS Safety Report 4443997-6 (Version None)
Quarter: 2004Q3

REPORT INFORMATION
  Report Type: 
  Country: None (occurrence: None)
  Receive Date: 20040729
  Receipt Date: 20031015
  Transmission Date: 20050211
  Serious: Yes (Other)
  Sender: FDA-Public Use
  Company Number: US-JNJFOC-20031003639

PATIENT
  Age: 85 Year
  Sex: Female

DRUGS (2)
  1. RISPERDAL [Suspect]
     Dosage: ORAL
     Route: 048
     Dates: start: 20020101, end: 20030901
  2. REMINYL [Concomitant]

REACTIONS (1)
  - CEREBROVASCULAR ACCIDENT [None]
